FAERS Safety Report 9960594 (Version 1)
Quarter: 2014Q1

REPORT INFORMATION
  Report Type: Spontaneous
  Country: US (occurrence: None)
  Receive Date: 20140304
  Receipt Date: 20140304
  Transmission Date: 20141002
  Serious: Yes (Other)
  Sender: FDA-Public Use
  Company Number: None

PATIENT
  Age: 22 Year
  Sex: Male
  Weight: 79.38 kg

DRUGS (2)
  1. DIVALPROEX [Suspect]
     Indication: BIPOLAR DISORDER
     Dosage: ONE TAB THREE TIMES DLY
     Dates: start: 2008
  2. DIVALPROEX [Suspect]
     Indication: ATTENTION DEFICIT/HYPERACTIVITY DISORDER
     Dosage: ONE TAB THREE TIMES DLY
     Dates: start: 2008

REACTIONS (3)
  - Psychotic disorder [None]
  - Mania [None]
  - Product substitution issue [None]
